FAERS Safety Report 20207105 (Version 1)
Quarter: 2021Q4

REPORT INFORMATION
  Report Type: Spontaneous
  Country: NI (occurrence: None)
  Receive Date: 20211219
  Receipt Date: 20211219
  Transmission Date: 20220303
  Serious: No
  Sender: FDA-Public Use
  Company Number: None

PATIENT
  Age: 23 Year
  Sex: Female
  Weight: 65 kg

DRUGS (7)
  1. CIPROFLOXACIN [Suspect]
     Active Substance: CIPROFLOXACIN
     Indication: Antibiotic prophylaxis
     Dosage: FREQUENCY : DAILY; 1 TABLET?
     Route: 048
     Dates: start: 20211218, end: 20211219
  2. ASCORBIC ACID [Concomitant]
     Active Substance: ASCORBIC ACID
  3. COLCHICINE [Concomitant]
     Active Substance: COLCHICINE
  4. LAXALAN [Concomitant]
  5. MUGASIN [Concomitant]
  6. LVERMECTINE [Concomitant]
  7. ITRACONAZOLE [Concomitant]
     Active Substance: ITRACONAZOLE

REACTIONS (6)
  - Muscular weakness [None]
  - Pain [None]
  - Gait disturbance [None]
  - Dysstasia [None]
  - Abdominal pain upper [None]
  - Fatigue [None]

NARRATIVE: CASE EVENT DATE: 20211219
